FAERS Safety Report 18525718 (Version 2)
Quarter: 2020Q4

REPORT INFORMATION
  Report Type: Report from Study
  Country: None (occurrence: DE)
  Receive Date: 20201119
  Receipt Date: 20201222
  Transmission Date: 20210114
  Serious: Yes (Death, Other)
  Sender: FDA-Public Use
  Company Number: DE-ABBVIE-20K-062-3656128-00

PATIENT
  Age: 76 Year
  Sex: Female
  Weight: 46 kg

DRUGS (15)
  1. DUODOPA [Suspect]
     Active Substance: CARBIDOPA\LEVODOPA
     Route: 050
     Dates: start: 202007, end: 2020
  2. DUODOPA [Suspect]
     Active Substance: CARBIDOPA\LEVODOPA
     Dosage: MD 6.5 ML, CRD 2.0 ML/H, ED 1.6 ML
     Route: 050
     Dates: start: 2020, end: 2020
  3. CLOZAPIN [Concomitant]
     Active Substance: CLOZAPINE
     Indication: PRODUCT USED FOR UNKNOWN INDICATION
  4. FOLSAN [Concomitant]
     Active Substance: FOLIC ACID
     Indication: PRODUCT USED FOR UNKNOWN INDICATION
  5. PANTOPRAZOL [Concomitant]
     Active Substance: PANTOPRAZOLE SODIUM
     Indication: PRODUCT USED FOR UNKNOWN INDICATION
  6. QUETIAPIN [Concomitant]
     Active Substance: QUETIAPINE
     Indication: PRODUCT USED FOR UNKNOWN INDICATION
  7. VITAMIN B12 [Concomitant]
     Active Substance: CYANOCOBALAMIN
     Indication: PRODUCT USED FOR UNKNOWN INDICATION
  8. LEVODOPA RETARD [Concomitant]
     Active Substance: LEVODOPA
     Indication: PRODUCT USED FOR UNKNOWN INDICATION
  9. NACOM [Concomitant]
     Active Substance: CARBIDOPA\LEVODOPA
     Indication: PRODUCT USED FOR UNKNOWN INDICATION
     Dosage: 100/25 MG
  10. TOLTERODIN [Concomitant]
     Active Substance: TOLTERODINE TARTRATE
     Indication: PRODUCT USED FOR UNKNOWN INDICATION
  11. DUODOPA [Suspect]
     Active Substance: CARBIDOPA\LEVODOPA
     Indication: PARKINSON^S DISEASE
     Dosage: MD 4.5 ML (90MG), CRD 0.8 ML/H (16MG/H), ED 1.2 ML (24MG)
     Route: 050
     Dates: start: 20190110, end: 2020
  12. VIGANTOLETTEN [Concomitant]
     Active Substance: CHOLECALCIFEROL
     Indication: PRODUCT USED FOR UNKNOWN INDICATION
  13. MADOPAR LT [Concomitant]
     Active Substance: BENSERAZIDE HYDROCHLORIDE\LEVODOPA
     Indication: PRODUCT USED FOR UNKNOWN INDICATION
  14. TOVIAZ [Concomitant]
     Active Substance: FESOTERODINE FUMARATE
     Indication: PRODUCT USED FOR UNKNOWN INDICATION
  15. MOVICOL [Concomitant]
     Active Substance: POLYETHYLENE GLYCOL 3350\POTASSIUM CHLORIDE\SODIUM BICARBONATE\SODIUM CHLORIDE
     Indication: PRODUCT USED FOR UNKNOWN INDICATION
     Dosage: 1 SACHET

REACTIONS (35)
  - Gait inability [Unknown]
  - Mean cell volume decreased [Unknown]
  - Eosinophil count decreased [Not Recovered/Not Resolved]
  - Hyposmia [Unknown]
  - General physical health deterioration [Not Recovered/Not Resolved]
  - Joint range of motion decreased [Unknown]
  - Mental impairment [Unknown]
  - Hyperkinesia [Unknown]
  - Parkinson^s disease [Unknown]
  - Specific gravity urine decreased [Unknown]
  - White blood cell count increased [Unknown]
  - Altered state of consciousness [Unknown]
  - Muscular weakness [Unknown]
  - Cyanosis [Unknown]
  - Blood creatinine decreased [Recovered/Resolved]
  - Red blood cell count increased [Unknown]
  - Resting tremor [Unknown]
  - Bedridden [Unknown]
  - Nutritional condition abnormal [Unknown]
  - Communication disorder [Unknown]
  - Electrocardiogram abnormal [Unknown]
  - Salivary hypersecretion [Unknown]
  - Hypoaesthesia [Unknown]
  - Hyporeflexia [Unknown]
  - Haemoglobin decreased [Unknown]
  - Escherichia urinary tract infection [Unknown]
  - Constipation [Unknown]
  - Pneumonia [Fatal]
  - Dysmetria [Unknown]
  - Urinary tract infection [Unknown]
  - Vitamin B12 increased [Unknown]
  - Escherichia test positive [Unknown]
  - Lymphocyte count decreased [Recovered/Resolved]
  - Nuchal rigidity [Unknown]
  - Cogwheel rigidity [Unknown]

NARRATIVE: CASE EVENT DATE: 2020
